FAERS Safety Report 17575832 (Version 3)
Quarter: 2020Q2

REPORT INFORMATION
  Report Type: Report from Study
  Country: NL (occurrence: NL)
  Receive Date: 20200324
  Receipt Date: 20200407
  Transmission Date: 20200713
  Serious: Yes (Hospitalization)
  Sender: FDA-Public Use
  Company Number: NL-ROCHE-2567103

PATIENT
  Age: 74 Year
  Sex: Female

DRUGS (4)
  1. PACLITAXEL. [Suspect]
     Active Substance: PACLITAXEL
     Dosage: MOST RECENT DOSE ON 19/FEB/2020 (160 MG)
     Route: 042
     Dates: start: 20200207
  2. PERTUZUMAB. [Suspect]
     Active Substance: PERTUZUMAB
     Dosage: MOST RECENT DOSE ON 17/FEB/2020 (840 MG)
     Route: 041
     Dates: start: 20200207
  3. CARBOPLATIN. [Suspect]
     Active Substance: CARBOPLATIN
     Dosage: MOST RECENT DOSE ON 11/FEB/2020 (590 MG)
     Route: 042
     Dates: start: 20200207
  4. TRASTUZUMAB. [Suspect]
     Active Substance: TRASTUZUMAB
     Dosage: MOST RECENT DOSE ON 11/FEB/2020 221 MG
     Route: 041
     Dates: start: 20200207

REACTIONS (2)
  - Melaena [Recovered/Resolved]
  - Diarrhoea [Recovered/Resolved]

NARRATIVE: CASE EVENT DATE: 20200224
